FAERS Safety Report 6609085-5 (Version None)
Quarter: 2010Q1

REPORT INFORMATION
  Report Type: 
  Country: None (occurrence: None)
  Receive Date: 20100225
  Receipt Date: 20100225
  Transmission Date: 20100710
  Serious: Yes (Hospitalization)
  Sender: FDA-Public Use
  Company Number: None

PATIENT
  Sex: Male
  Weight: 45.8 kg

DRUGS (5)
  1. MERCAPTOPURINE [Suspect]
     Dosage: 2400 MG
     Dates: end: 20100207
  2. METHOTREXATE [Suspect]
     Dosage: 60 MG
     Dates: end: 20100111
  3. PEG-L-ASPARAGINASE (PEGASPARGASE, ONCOSPAR) [Suspect]
     Dosage: 7050 IU
     Dates: end: 20100212
  4. VINCRISTINE SULFATE [Suspect]
     Dosage: 6 MG
     Dates: end: 20100211
  5. CYCLOPHOSPHAMIDE [Suspect]
     Dosage: 2820 MG
     Dates: end: 20100125

REACTIONS (1)
  - HYPERBILIRUBINAEMIA [None]
